FAERS Safety Report 8885723 (Version 1)
Quarter: 2012Q4

REPORT INFORMATION
  Report Type: 
  Country: US (occurrence: US)
  Receive Date: 20121105
  Receipt Date: 20121105
  Transmission Date: 20130627
  Serious: Yes (Hospitalization)
  Sender: FDA-Public Use
  Company Number: PHEH2012US021314

PATIENT
  Age: 68 Year
  Sex: Male
  Weight: 83.9 kg

DRUGS (4)
  1. GLEEVEC [Suspect]
     Dosage: 400 mg, Daily
     Route: 048
  2. ARICEPT [Suspect]
     Dosage: UNK UKN, UNK
  3. NAMENDA [Concomitant]
     Dosage: 5 mg, UNK
  4. PRILOSEC [Concomitant]
     Dosage: UNK UKN, UNK

REACTIONS (2)
  - Heart rate decreased [Unknown]
  - Diarrhoea [Unknown]
